FAERS Safety Report 6410313-X (Version None)
Quarter: 2009Q4

REPORT INFORMATION
  Report Type: 
  Country: None (occurrence: None)
  Receive Date: 20091022
  Receipt Date: 20091014
  Transmission Date: 20100525
  Serious: Yes (Hospitalization)
  Sender: FDA-Public Use
  Company Number: JP-ROCHE-663645

PATIENT
  Sex: Female
  Weight: 9.3 kg

DRUGS (5)
  1. HORIZON [Suspect]
     Indication: CONVULSION
     Dosage: 5 MG, UID/QD
     Route: 041
     Dates: start: 20090920, end: 20090920
  2. DORMICUM (INJ) [Suspect]
     Indication: CONVULSION
     Dosage: 3 MG, UID/QD
     Route: 041
     Dates: start: 20090920, end: 20090920
  3. MUCODYNE [Concomitant]
     Dosage: DRY SYRUP
  4. HOKUNALIN [Concomitant]
     Dosage: FORM: TAPE
  5. DIAPP [Concomitant]

REACTIONS (1)
  - ASTHMA [None]
